FAERS Safety Report 7999017-X (Version None)
Quarter: 2011Q4

REPORT INFORMATION
  Report Type: 
  Country: None (occurrence: None)
  Receive Date: 20111221
  Receipt Date: 20111214
  Transmission Date: 20120403
  Serious: Yes (Hospitalization)
  Sender: FDA-Public Use
  Company Number: NL-ROCHE-802504

PATIENT
  Age: 47 Year
  Sex: Male
  Weight: 96 kg

DRUGS (4)
  1. VEMURAFENIB [Suspect]
     Indication: METASTATIC MALIGNANT MELANOMA
     Dosage: TEMPORARILY INTERRUPTED.
     Route: 048
     Dates: start: 20110722, end: 20110913
  2. OXYCONTIN [Concomitant]
  3. ACETAMINOPHEN [Concomitant]
  4. VEMURAFENIB [Suspect]
     Route: 048

REACTIONS (1)
  - PERICARDIAL EFFUSION [None]
